FAERS Safety Report 12237036 (Version 1)
Quarter: 2016Q2

REPORT INFORMATION
  Report Type: Spontaneous
  Country: US (occurrence: US)
  Receive Date: 20160405
  Receipt Date: 20160405
  Transmission Date: 20160815
  Serious: Yes (Other)
  Sender: FDA-Public Use
  Company Number: US-RECKITT BENCKISER HEALTHCARE INT LIMITED-RB-83813-2016

PATIENT
  Age: 50 Year
  Sex: Female

DRUGS (1)
  1. DELSYM [Suspect]
     Active Substance: DEXTROMETHORPHAN
     Indication: PRODUCT USED FOR UNKNOWN INDICATION
     Dosage: UNK, BID
     Route: 065
     Dates: start: 20160323, end: 20160323

REACTIONS (8)
  - Hypersensitivity [Unknown]
  - Pruritus generalised [Recovered/Resolved]
  - Dizziness [Not Recovered/Not Resolved]
  - Swollen tongue [Recovered/Resolved]
  - Joint swelling [Unknown]
  - Nasal discomfort [Not Recovered/Not Resolved]
  - Peripheral swelling [Unknown]
  - Paraesthesia oral [Recovered/Resolved]

NARRATIVE: CASE EVENT DATE: 201603
